FAERS Safety Report 20467430 (Version 2)
Quarter: 2022Q1

REPORT INFORMATION
  Report Type: Other
  Country: JP (occurrence: JP)
  Receive Date: 20220214
  Receipt Date: 20220218
  Transmission Date: 20220423
  Serious: Yes (Hospitalization, Other)
  Sender: FDA-Public Use
  Company Number: JP-CHUGAI-2022003186

PATIENT
  Age: 76 Year
  Sex: Female

DRUGS (1)
  1. XELODA [Suspect]
     Active Substance: CAPECITABINE
     Indication: Colon cancer
     Dosage: 2500 MILLIGRAM/SQ. METER
     Route: 048

REACTIONS (8)
  - Decreased appetite [Recovering/Resolving]
  - Enteritis infectious [Unknown]
  - Sepsis [Unknown]
  - Disseminated intravascular coagulation [Recovering/Resolving]
  - Stomatitis [Recovering/Resolving]
  - Diarrhoea [Not Recovered/Not Resolved]
  - Febrile neutropenia [Recovering/Resolving]
  - Thrombocytopenia [Unknown]
